FAERS Safety Report 4641546-0 (Version None)
Quarter: 2005Q2

REPORT INFORMATION
  Report Type: 
  Country: None (occurrence: None)
  Receive Date: 20050421
  Receipt Date: 20050411
  Transmission Date: 20051028
  Serious: Yes (Hospitalization)
  Sender: FDA-Public Use
  Company Number: US-JNJFOC-20050402678

PATIENT
  Sex: Male

DRUGS (2)
  1. HALDOL [Suspect]
     Indication: DRUG USE FOR UNKNOWN INDICATION
  2. CLOZAPINE [Concomitant]
     Indication: SCHIZOAFFECTIVE DISORDER
     Dates: start: 20020601, end: 20050301

REACTIONS (2)
  - OVERDOSE [None]
  - SUICIDE ATTEMPT [None]
